FAERS Safety Report 5524375-5 (Version None)
Quarter: 2007Q4

REPORT INFORMATION
  Report Type: 
  Country: None (occurrence: None)
  Receive Date: 20071121
  Receipt Date: 20071113
  Transmission Date: 20080405
  Serious: Yes (Hospitalization)
  Sender: FDA-Public Use
  Company Number: US-PFIZER INC-2007096129

PATIENT
  Age: 90 Year
  Sex: Female

DRUGS (2)
  1. CELEBREX [Suspect]
  2. ANTIHYPERTENSIVES [Concomitant]

REACTIONS (3)
  - GASTRECTOMY [None]
  - HAEMATEMESIS [None]
  - SPLENECTOMY [None]
